FAERS Safety Report 14958968 (Version 1)
Quarter: 2018Q2

REPORT INFORMATION
  Report Type: Spontaneous
  Country: SE (occurrence: SE)
  Receive Date: 20180531
  Receipt Date: 20180531
  Transmission Date: 20180711
  Serious: Yes (Hospitalization)
  Sender: FDA-Public Use
  Company Number: SE-MYLANLABS-2018M1036000

PATIENT
  Age: 39 Year
  Sex: Female

DRUGS (2)
  1. QUETIAPINE. [Suspect]
     Active Substance: QUETIAPINE
     Indication: PRODUCT USED FOR UNKNOWN INDICATION
     Route: 065
  2. VALPROIC ACID. [Suspect]
     Active Substance: VALPROIC ACID
     Indication: PRODUCT USED FOR UNKNOWN INDICATION
     Dosage: 1000 MG, QD
     Route: 065

REACTIONS (7)
  - Somnolence [Unknown]
  - Affect lability [Unknown]
  - Overdose [Unknown]
  - Pyrexia [Unknown]
  - Pneumonia [Unknown]
  - Depressed level of consciousness [Unknown]
  - Inappropriate schedule of drug administration [Unknown]
